FAERS Safety Report 15957108 (Version 1)
Quarter: 2019Q1

REPORT INFORMATION
  Report Type: Report from Study
  Country: US (occurrence: US)
  Receive Date: 20190213
  Receipt Date: 20190213
  Transmission Date: 20190417
  Serious: Yes (Other)
  Sender: FDA-Public Use
  Company Number: PHEH2019US005999

PATIENT
  Sex: Female

DRUGS (1)
  1. GLATOPA [Suspect]
     Active Substance: GLATIRAMER ACETATE
     Indication: MULTIPLE SCLEROSIS
     Dosage: 20 MG, QD, ROTATES SITES
     Route: 058

REACTIONS (4)
  - Ear disorder [Not Recovered/Not Resolved]
  - Otorrhoea [Not Recovered/Not Resolved]
  - Deafness [Not Recovered/Not Resolved]
  - Menstruation irregular [Not Recovered/Not Resolved]
